FAERS Safety Report 4488912-4 (Version None)
Quarter: 2004Q4

REPORT INFORMATION
  Report Type: 
  Country: None (occurrence: None)
  Receive Date: 20041029
  Receipt Date: 20041020
  Transmission Date: 20050328
  Serious: Yes (Hospitalization)
  Sender: FDA-Public Use
  Company Number: US-ABBOTT-04P-163-0278049-00

PATIENT
  Age: 60 Year
  Sex: Female

DRUGS (3)
  1. DEPAKOTE [Suspect]
     Indication: CONVULSION
     Dates: start: 20040401, end: 20041001
  2. VALPROATE SODIUM [Suspect]
     Indication: CONVULSION
     Dates: start: 20041001
  3. FLAGYL [Concomitant]
     Indication: DRUG USE FOR UNKNOWN INDICATION

REACTIONS (6)
  - BLOOD BILIRUBIN INCREASED [None]
  - CARDIAC FAILURE [None]
  - FEELING ABNORMAL [None]
  - PNEUMONIA [None]
  - STATUS EPILEPTICUS [None]
  - TRANSAMINASES INCREASED [None]
